FAERS Safety Report 6818453-8 (Version None)
Quarter: 2010Q3

REPORT INFORMATION
  Report Type: 
  Country: None (occurrence: None)
  Receive Date: 20100706
  Receipt Date: 20080414
  Transmission Date: 20110219
  Serious: No
  Sender: FDA-Public Use
  Company Number: US-PFIZER INC-2008033256

PATIENT
  Sex: Male

DRUGS (1)
  1. ZITHROMAX [Suspect]

REACTIONS (3)
  - ABNORMAL BEHAVIOUR [None]
  - GASTROINTESTINAL DISORDER [None]
  - HEADACHE [None]
